FAERS Safety Report 12790170 (Version 1)
Quarter: 2016Q3

REPORT INFORMATION
  Report Type: Report from Study
  Country: AU (occurrence: AU)
  Receive Date: 20160928
  Receipt Date: 20160928
  Transmission Date: 20161109
  Serious: Yes (Other)
  Sender: FDA-Public Use
  Company Number: AU-ABBVIE-12P-008-1003356-00

PATIENT
  Sex: Female

DRUGS (1)
  1. HUMIRA [Suspect]
     Active Substance: ADALIMUMAB
     Indication: PSORIASIS
     Route: 058
     Dates: start: 201007

REACTIONS (3)
  - Headache [Unknown]
  - Intracranial aneurysm [Unknown]
  - Ruptured cerebral aneurysm [Not Recovered/Not Resolved]

NARRATIVE: CASE EVENT DATE: 2012
